FAERS Safety Report 7450765-X (Version None)
Quarter: 2011Q2

REPORT INFORMATION
  Report Type: 
  Country: None (occurrence: None)
  Receive Date: 20110422
  Receipt Date: 20110413
  Transmission Date: 20111010
  Serious: Yes (Other)
  Sender: FDA-Public Use
  Company Number: 1000020252

PATIENT
  Age: 76 Year
  Sex: Male

DRUGS (1)
  1. CITALOPRAM HYDROBROMIDE [Suspect]
     Dosage: 40 MG (40 MG,1 IN 1 D), ORAL
     Route: 048

REACTIONS (3)
  - LACERATION [None]
  - CONTUSION [None]
  - WOUND HAEMORRHAGE [None]
